FAERS Safety Report 8882297 (Version 5)
Quarter: 2014Q2

REPORT INFORMATION
  Report Type: Spontaneous
  Country: US (occurrence: US)
  Receive Date: 20121105
  Receipt Date: 20140606
  Transmission Date: 20141212
  Serious: Yes (Hospitalization)
  Sender: FDA-Public Use
  Company Number: US-009507513-1210USA012640

PATIENT
  Sex: Male
  Weight: 102.4 kg

DRUGS (1)
  1. PROPECIA [Suspect]
     Indication: ANDROGENETIC ALOPECIA
     Dosage: 1 MG, QD
     Route: 048
     Dates: start: 20040702, end: 20120504

REACTIONS (17)
  - Shoulder operation [Unknown]
  - Arthropod bite [Unknown]
  - Cognitive disorder [Not Recovered/Not Resolved]
  - Hypogonadism [Unknown]
  - Pain [Unknown]
  - Dyspepsia [Unknown]
  - Acne [Unknown]
  - Bacterial infection [Unknown]
  - Tenosynovitis [Unknown]
  - Androgen deficiency [Unknown]
  - Hypertension [Unknown]
  - Incontinence [Unknown]
  - Micturition urgency [Unknown]
  - Eye operation [Unknown]
  - Depression [Unknown]
  - Sexual dysfunction [Not Recovered/Not Resolved]
  - Erectile dysfunction [Not Recovered/Not Resolved]
